FAERS Safety Report 7748164-6 (Version None)
Quarter: 2011Q3

REPORT INFORMATION
  Report Type: 
  Country: None (occurrence: None)
  Receive Date: 20110913
  Receipt Date: 20110908
  Transmission Date: 20111222
  Serious: No
  Sender: FDA-Public Use
  Company Number: US-ROXANE LABORATORIES, INC.-2011-RO-01225RO

PATIENT
  Sex: Female

DRUGS (2)
  1. DEXAMETHASONE [Suspect]
     Indication: UPPER RESPIRATORY TRACT INFECTION
     Route: 048
     Dates: start: 20110904, end: 20110904
  2. ALLEGRA D 24 HOUR [Suspect]
     Indication: UPPER RESPIRATORY TRACT INFECTION
     Dates: start: 20110904, end: 20110907

REACTIONS (3)
  - THINKING ABNORMAL [None]
  - DECREASED APPETITE [None]
  - DEPRESSED MOOD [None]
